FAERS Safety Report 4888374-9 (Version None)
Quarter: 2006Q1

REPORT INFORMATION
  Report Type: 
  Country: None (occurrence: None)
  Receive Date: 20060118
  Receipt Date: 20060105
  Transmission Date: 20060701
  Serious: Yes (Hospitalization)
  Sender: FDA-Public Use
  Company Number: 220929

PATIENT
  Age: 57 Year
  Sex: Female

DRUGS (6)
  1. MABTHERA (RITUXIMAB) CONC FOR SOLUTION FOR INFUSION [Suspect]
     Dosage: 660 MG, INTRAVENOUS
     Route: 042
     Dates: start: 20050929
  2. BLEOMYCIN [Suspect]
     Dosage: 10 MG, INTRAVENOUS
     Route: 042
     Dates: start: 20050930
  3. ADRIAMYCIN PFS [Suspect]
     Dosage: 130 MG,
     Dates: start: 20050930
  4. METHOTREXATE [Suspect]
     Dosage: 15 MG, INTRATHECAL
     Route: 037
     Dates: start: 20050930
  5. VINDESINE (VINDESINE) [Suspect]
     Dosage: 3.5 MG, INTRAVENOUS
     Route: 042
     Dates: start: 20050930, end: 20051223
  6. CYCLOPHOSPHAMIDE [Suspect]
     Dosage: 2.1 G, INTRAVENOUS
     Route: 042
     Dates: start: 20050930

REACTIONS (1)
  - DEAFNESS [None]
